FAERS Safety Report 16774798 (Version 3)
Quarter: 2019Q3

REPORT INFORMATION
  Report Type: Spontaneous
  Country: US (occurrence: US)
  Receive Date: 20190905
  Receipt Date: 20190919
  Transmission Date: 20191005
  Serious: Yes (Death, Other)
  Sender: FDA-Public Use
  Company Number: US-GW PHARMA-201908USGW3103

PATIENT

DRUGS (1)
  1. EPIDIOLEX [Suspect]
     Active Substance: CANNABIDIOL
     Indication: LENNOX-GASTAUT SYNDROME
     Dosage: 120 MILLIGRAM, BID
     Route: 048
     Dates: start: 20190705

REACTIONS (2)
  - Urinary bladder haemorrhage [Unknown]
  - Respiratory distress [Fatal]

NARRATIVE: CASE EVENT DATE: 20190807
